FAERS Safety Report 23950302 (Version 7)
Quarter: 2025Q4

REPORT INFORMATION
  Report Type: Report from Study
  Country: US (occurrence: US)
  Receive Date: 20240607
  Receipt Date: 20251128
  Transmission Date: 20260117
  Serious: Yes (Other)
  Sender: TAKEDA
  Company Number: US-TAKEDA-US201823498

PATIENT
  Age: 67 Year
  Sex: Female

DRUGS (3)
  1. HUMAN IMMUNOGLOBULIN G [Suspect]
     Active Substance: HUMAN IMMUNOGLOBULIN G
     Indication: Primary immunodeficiency syndrome
     Dosage: UNK
  2. HUMAN IMMUNOGLOBULIN G [Suspect]
     Active Substance: HUMAN IMMUNOGLOBULIN G
     Indication: Hypogammaglobulinaemia
     Dosage: 60 GRAM, Q4WEEKS
  3. HUMAN IMMUNOGLOBULIN G [Suspect]
     Active Substance: HUMAN IMMUNOGLOBULIN G
     Dosage: UNK

REACTIONS (16)
  - Diverticulitis [Recovering/Resolving]
  - Cataract [Unknown]
  - Kidney infection [Unknown]
  - Autoimmune thyroiditis [Unknown]
  - Illness [Unknown]
  - Procedural pain [Unknown]
  - Limb injury [Unknown]
  - Fall [Unknown]
  - Blood iron decreased [Unknown]
  - Insurance issue [Unknown]
  - Vision blurred [Unknown]
  - Multiple allergies [Unknown]
  - Rhinorrhoea [Unknown]
  - Nodule [Unknown]
  - Pain [Unknown]
  - Contusion [Recovered/Resolved]

NARRATIVE: CASE EVENT DATE: 20250623
